FAERS Safety Report 6206858-8 (Version None)
Quarter: 2009Q2

REPORT INFORMATION
  Report Type: 
  Country: None (occurrence: None)
  Receive Date: 20090528
  Receipt Date: 20090204
  Transmission Date: 20091009
  Serious: No
  Sender: FDA-Public Use
  Company Number: US-AMGEN-US331920

PATIENT
  Sex: Female
  Weight: 58.1 kg

DRUGS (11)
  1. NPLATE [Suspect]
     Indication: IDIOPATHIC THROMBOCYTOPENIC PURPURA
     Route: 058
     Dates: start: 20081125
  2. ATIVAN [Concomitant]
     Route: 065
     Dates: start: 20080201
  3. MULTI-VITAMINS [Concomitant]
     Route: 065
     Dates: start: 20080201
  4. CALCIUM WITH VITAMIN D [Concomitant]
     Route: 065
     Dates: start: 20080201
  5. VITAMIN B COMPLEX CAP [Concomitant]
     Route: 065
     Dates: start: 20080201
  6. MAGNESIUM SULFATE [Concomitant]
     Route: 065
     Dates: start: 20080201
  7. ASCORBIC ACID [Concomitant]
     Route: 065
     Dates: start: 20080201
  8. POTASSIUM CHLORIDE [Concomitant]
     Route: 065
     Dates: start: 20080201
  9. PRILOSEC [Concomitant]
     Route: 065
     Dates: start: 20081101
  10. CLARITIN [Concomitant]
     Route: 065
     Dates: start: 20081201
  11. SLOW-FE [Concomitant]
     Dates: start: 20080201

REACTIONS (5)
  - ARTHRALGIA [None]
  - BONE PAIN [None]
  - DYSPEPSIA [None]
  - FATIGUE [None]
  - SOMNOLENCE [None]
